FAERS Safety Report 18857193 (Version 1)
Quarter: 2021Q1

REPORT INFORMATION
  Report Type: Spontaneous
  Country: GR (occurrence: GR)
  Receive Date: 20210208
  Receipt Date: 20210208
  Transmission Date: 20210420
  Serious: No
  Sender: FDA-Public Use
  Company Number: GR-LUPIN PHARMACEUTICALS INC.-2021-01342

PATIENT
  Age: 26 Year
  Sex: Female

DRUGS (2)
  1. METHYLPREDNISOLONE. [Suspect]
     Active Substance: METHYLPREDNISOLONE
     Indication: CONCENTRIC SCLEROSIS
     Dosage: UNK
     Route: 042
  2. RITUXIMAB. [Suspect]
     Active Substance: RITUXIMAB
     Indication: CONCENTRIC SCLEROSIS
     Dosage: 375 MILLIGRAM/SQ. METER (FOUR DOSES)
     Route: 065

REACTIONS (1)
  - Off label use [Unknown]
